FAERS Safety Report 10248448 (Version 1)
Quarter: 2014Q2

REPORT INFORMATION
  Report Type: Spontaneous
  Country: US (occurrence: US)
  Receive Date: 20140620
  Receipt Date: 20140620
  Transmission Date: 20141212
  Serious: No
  Sender: FDA-Public Use
  Company Number: US-BIOGENIDEC-2014BI057055

PATIENT
  Sex: Female

DRUGS (1)
  1. TECFIDERA [Suspect]
     Indication: MULTIPLE SCLEROSIS

REACTIONS (5)
  - Weight decreased [Unknown]
  - Dizziness [Unknown]
  - Concussion [Unknown]
  - Fall [Recovered/Resolved]
  - Vomiting [Unknown]
